FAERS Safety Report 13903641 (Version 1)
Quarter: 2017Q3

REPORT INFORMATION
  Report Type: Spontaneous
  Country: US (occurrence: US)
  Receive Date: 20170824
  Receipt Date: 20170824
  Transmission Date: 20171127
  Serious: Yes (Other)
  Sender: FDA-Public Use
  Company Number: US-BION-005085

PATIENT
  Age: 9 Year
  Sex: Female

DRUGS (5)
  1. CLOBAZAM [Suspect]
     Active Substance: CLOBAZAM
     Indication: LENNOX-GASTAUT SYNDROME
     Dosage: 10 MG Q AM AND 15 MG Q PM
     Route: 048
     Dates: start: 20120724, end: 201610
  2. TOPIRAMATE. [Suspect]
     Active Substance: TOPIRAMATE
     Dates: end: 201610
  3. VALPROIC ACID. [Suspect]
     Active Substance: VALPROIC ACID
     Route: 048
     Dates: end: 201610
  4. CLONAZEPAM. [Suspect]
     Active Substance: CLONAZEPAM
     Dates: end: 201610
  5. LEVETIRACETAM. [Suspect]
     Active Substance: LEVETIRACETAM
     Dates: end: 201610

REACTIONS (4)
  - Vomiting [Unknown]
  - Aggression [Unknown]
  - Coma [Unknown]
  - Abnormal behaviour [Unknown]

NARRATIVE: CASE EVENT DATE: 201610
